FAERS Safety Report 5297776-0 (Version None)
Quarter: 2007Q2

REPORT INFORMATION
  Report Type: 
  Country: None (occurrence: None)
  Receive Date: 20070412
  Receipt Date: 20070412
  Transmission Date: 20071010
  Serious: Yes (Hospitalization)
  Sender: FDA-Public Use
  Company Number: None

PATIENT
  Sex: Male
  Weight: 85 kg

DRUGS (1)
  1. PEG-ASPARGASE -ONCASPAR- 750 UNITS/ML ENZON [Suspect]
     Indication: ACUTE LYMPHOCYTIC LEUKAEMIA
     Dosage: 3750 UNITS X1 IV DRIP
     Route: 041

REACTIONS (1)
  - HYPERBILIRUBINAEMIA [None]
